FAERS Safety Report 8218534-0 (Version None)
Quarter: 2012Q1

REPORT INFORMATION
  Report Type: 
  Country: None (occurrence: None)
  Receive Date: 20120319
  Receipt Date: 20120308
  Transmission Date: 20120608
  Serious: Yes (Death, Life-Threatening, Hospitalization, Other)
  Sender: FDA-Public Use
  Company Number: US-ACTELION-A-NJ2011-49648

PATIENT

DRUGS (3)
  1. OXYGEN [Concomitant]
  2. REVATIO [Concomitant]
  3. TRACLEER [Suspect]
     Indication: PULMONARY ARTERIAL HYPERTENSION
     Dosage: UNK
     Route: 048
     Dates: start: 20060501

REACTIONS (8)
  - TRANSFUSION [None]
  - DISCOMFORT [None]
  - VOMITING [None]
  - DEATH [None]
  - NAUSEA [None]
  - GASTROINTESTINAL HAEMORRHAGE [None]
  - PULMONARY ARTERIAL HYPERTENSION [None]
  - HEADACHE [None]
